FAERS Safety Report 17285556 (Version 5)
Quarter: 2020Q4

REPORT INFORMATION
  Report Type: Report from Study
  Country: US (occurrence: US)
  Receive Date: 20200117
  Receipt Date: 20201101
  Transmission Date: 20210113
  Serious: Yes (Other)
  Sender: FDA-Public Use
  Company Number: NVSC2020US008992

PATIENT
  Sex: Female

DRUGS (1)
  1. COSENTYX [Suspect]
     Active Substance: SECUKINUMAB
     Indication: PSORIASIS
     Dosage: 300 MG
     Route: 058
     Dates: start: 20191017

REACTIONS (4)
  - COVID-19 [Recovered/Resolved]
  - Fatigue [Recovering/Resolving]
  - Pharyngitis streptococcal [Recovered/Resolved]
  - Injection site pain [Not Recovered/Not Resolved]
